FAERS Safety Report 21767616 (Version 1)
Quarter: 2022Q4

REPORT INFORMATION
  Report Type: Spontaneous
  Country: US (occurrence: None)
  Receive Date: 20221222
  Receipt Date: 20221222
  Transmission Date: 20230113
  Serious: No
  Sender: FDA-Public Use
  Company Number: None

PATIENT
  Age: 23 Year
  Sex: Male
  Weight: 117 kg

DRUGS (4)
  1. VENLAFAXINE HCL [Suspect]
     Active Substance: VENLAFAXINE HYDROCHLORIDE
     Indication: Depression
     Dosage: OTHER QUANTITY : 1 CAPSULE(S);?FREQUENCY : DAILY;?
     Route: 048
     Dates: start: 20220901, end: 20221222
  2. OMEGA 3 [Concomitant]
     Active Substance: CAPSAICIN
  3. MULTIVITAMIN [Concomitant]
  4. CURCUMIN [Concomitant]
     Active Substance: CURCUMIN

REACTIONS (4)
  - Dizziness [None]
  - Nausea [None]
  - Withdrawal syndrome [None]
  - Product dispensing issue [None]

NARRATIVE: CASE EVENT DATE: 20221222
